FAERS Safety Report 10717744 (Version 2)
Quarter: 2015Q2

REPORT INFORMATION
  Report Type: Spontaneous
  Country: US (occurrence: US)
  Receive Date: 20150116
  Receipt Date: 20150629
  Transmission Date: 20150821
  Serious: No
  Sender: FDA-Public Use
  Company Number: US-PFIZER INC-2015015088

PATIENT
  Age: 59 Year
  Sex: Male

DRUGS (18)
  1. ASPIRIN EC [Concomitant]
     Active Substance: ASPIRIN
     Dosage: 1 DF, 1X/DAY (81 MG EC LOW DOSE) (AT 9:00 AM)
  2. WALGREEN?S MULTIPLE VITAMIN [Concomitant]
     Dosage: 1 DF, DAILY (AT 9:00 AM)
  3. DOCQLACE [Concomitant]
     Active Substance: DOCUSATE SODIUM
     Dosage: 100 MG, 2X/DAY (TAKE 1 AT 9:00AM AND 1 AT 9:00PM)
  4. VITAMIN D3 [Concomitant]
     Active Substance: CHOLECALCIFEROL
     Dosage: 2000 IU, DAILY (AT 9:00AM)
  5. DIOVAN [Concomitant]
     Active Substance: VALSARTAN
     Indication: HYPERTENSION
     Dosage: UNK
     Dates: start: 2005, end: 201410
  6. CENTRUM [Concomitant]
     Active Substance: VITAMINS
     Dosage: UNK
     Dates: start: 2008
  7. LISINOPRIL. [Concomitant]
     Active Substance: LISINOPRIL
     Dosage: 40 MG, DAILY (AT 9:00AM)
  8. LYRICA [Concomitant]
     Active Substance: PREGABALIN
     Dosage: 300 MG, 2X/DAY (TAKE 2 AT 9:00AM AND 2 AT 9:00PM)
  9. AMLODIPINE BESYLATE. [Concomitant]
     Active Substance: AMLODIPINE BESYLATE
     Dosage: 10 MG, DAILY (AT 9:00AM)
  10. VIAGRA [Suspect]
     Active Substance: SILDENAFIL CITRATE
     Dosage: 100 MG, AS NEEDED
     Route: 048
     Dates: start: 2011
  11. CENTRUM [Concomitant]
     Active Substance: VITAMINS
     Dosage: UNK
     Dates: start: 2005
  12. PANTOPRAZOLE [Concomitant]
     Active Substance: PANTOPRAZOLE SODIUM
     Dosage: 40 MG, DAILY (AT 9:00AM)
  13. HYDROCHLOROTHIAZIDE. [Concomitant]
     Active Substance: HYDROCHLOROTHIAZIDE
     Dosage: 25 MG, DAILY (AT 9:00AM)
  14. METOPROLOL TARTRATE. [Concomitant]
     Active Substance: METOPROLOL TARTRATE
     Dosage: 25 MG, 2X/DAY (TAKE 1 AT 9:00AM AND 1 AT 9:00PM)
  15. ALLOPURINOL. [Concomitant]
     Active Substance: ALLOPURINOL
     Dosage: 100 MG, DAILY (AT 9:00AM)
  16. ATORVASTATIN [Concomitant]
     Active Substance: ATORVASTATIN
     Dosage: 10 MG, 1X/DAY, (EVERY NIGHT AT BEDTIME)
  17. AMOXICILLIN. [Concomitant]
     Active Substance: AMOXICILLIN
     Dosage: 500 MG, UNK, (TAKE 4 BEFORE EACH DENTAL APPOINTMENT)
  18. VIAGRA [Suspect]
     Active Substance: SILDENAFIL CITRATE
     Dosage: 100 MG, AS NEEDED
     Route: 048
     Dates: start: 2007

REACTIONS (1)
  - Herpes zoster [Recovered/Resolved]

NARRATIVE: CASE EVENT DATE: 2009
